FAERS Safety Report 6676700-X (Version None)
Quarter: 2010Q1

REPORT INFORMATION
  Report Type: 
  Country: None (occurrence: None)
  Receive Date: 20100331
  Receipt Date: 20081126
  Transmission Date: 20100710
  Serious: Yes (Hospitalization, Disabling)
  Sender: FDA-Public Use
  Company Number: 2008060211

PATIENT
  Age: 63 Year
  Sex: Male

DRUGS (2)
  1. SUTENT [Suspect]
     Indication: SYNOVIAL SARCOMA
     Dosage: 1X/DAY, ORAL
     Route: 048
     Dates: start: 20080314, end: 20080401
  2. VICODIN [Concomitant]

REACTIONS (1)
  - INTESTINAL PERFORATION [None]
